FAERS Safety Report 5598372-8 (Version None)
Quarter: 2008Q1

REPORT INFORMATION
  Report Type: 
  Country: None (occurrence: None)
  Receive Date: 20080116
  Receipt Date: 20080107
  Transmission Date: 20080703
  Serious: Yes (Hospitalization)
  Sender: FDA-Public Use
  Company Number: 2007BI023771

PATIENT
  Age: 54 Year
  Sex: Female
  Weight: 56.6996 kg

DRUGS (11)
  1. AVONEX [Suspect]
     Indication: MULTIPLE SCLEROSIS
     Dosage: 30 UG; QW; IM
     Route: 030
     Dates: start: 19970101
  2. ASPIRIN [Concomitant]
  3. PLAVIX [Concomitant]
  4. LOVASTATIN [Concomitant]
  5. TRAZODONE HCL [Concomitant]
  6. NEURONTIN [Concomitant]
  7. LEXAPRO [Concomitant]
  8. PROVIGIL [Concomitant]
  9. LEVOTHYROXINE SODIUM [Concomitant]
  10. LOMOTIL [Concomitant]
  11. CHANTIX [Concomitant]

REACTIONS (4)
  - BUNDLE BRANCH BLOCK RIGHT [None]
  - CARDIAC DISORDER [None]
  - CORONARY ARTERY STENOSIS [None]
  - WEIGHT INCREASED [None]
